FAERS Safety Report 4346200-0 (Version None)
Quarter: 2004Q1

REPORT INFORMATION
  Report Type: 
  Country: None (occurrence: None)
  Receive Date: 20040325
  Receipt Date: 20040107
  Transmission Date: 20041129
  Serious: No
  Sender: FDA-Public Use
  Company Number: USA040156032

PATIENT
  Age: 81 Year
  Sex: Female

DRUGS (11)
  1. FORTEO [Suspect]
     Indication: OSTEOPOROSIS
     Dates: start: 20031230
  2. FORTEO [Suspect]
     Indication: SCOLIOSIS
     Dates: start: 20031230
  3. DETROL LA (TOLTERODINE L-TARTRATE) [Concomitant]
  4. COZAAR [Concomitant]
  5. PREDNISONE [Concomitant]
  6. FOLIC ACID [Concomitant]
  7. PROTONIX [Concomitant]
  8. METHOTREXATE [Concomitant]
  9. VITAMIN B-12 [Concomitant]
  10. ASPIRIN [Concomitant]
  11. LOSARTAN POTASSIUM W/HYDROCHLOROTHIAZIDE [Concomitant]

REACTIONS (2)
  - BLADDER DISCOMFORT [None]
  - MICTURITION URGENCY [None]
